FAERS Safety Report 7601507-6 (Version None)
Quarter: 2011Q3

REPORT INFORMATION
  Report Type: 
  Country: None (occurrence: None)
  Receive Date: 20110711
  Receipt Date: 20110629
  Transmission Date: 20111222
  Serious: Yes (Hospitalization)
  Sender: FDA-Public Use
  Company Number: HK-PFIZER INC-2011137802

PATIENT
  Age: 72 Year
  Sex: Male
  Weight: 50.2 kg

DRUGS (2)
  1. TEMSIROLIMUS [Suspect]
     Dosage: 20 MG, WEEKLY
     Dates: start: 20110601
  2. TEMSIROLIMUS [Suspect]
     Indication: HEPATIC NEOPLASM MALIGNANT NON-RESECTABLE
     Dosage: 25 MG, WEEKLY
     Dates: start: 20110420, end: 20110518

REACTIONS (1)
  - SYNCOPE [None]
